FAERS Safety Report 5453993-8 (Version None)
Quarter: 2007Q3

REPORT INFORMATION
  Report Type: 
  Country: None (occurrence: None)
  Receive Date: 20070917
  Receipt Date: 20070905
  Transmission Date: 20080115
  Serious: Yes (Hospitalization)
  Sender: FDA-Public Use
  Company Number: HQWYE597017APR07

PATIENT
  Sex: Male
  Weight: 72.4 kg

DRUGS (3)
  1. TEMSIROLIMUS [Suspect]
     Indication: MANTLE CELL LYMPHOMA
     Dosage: 175 MG/M2 = 330 MGS (PROTOCOL = 175 MG)
     Route: 042
     Dates: start: 20070404, end: 20070404
  2. TEMSIROLIMUS [Suspect]
     Dosage: 175 MG/M2 = 330 MGS (PROTOCOL = 175 MG)
     Route: 042
     Dates: start: 20070411, end: 20070411
  3. TELMISARTAN [Concomitant]
     Indication: HYPERTENSION
     Route: 048

REACTIONS (4)
  - ACCIDENTAL OVERDOSE [None]
  - DIARRHOEA [None]
  - INCORRECT DOSE ADMINISTERED [None]
  - RECTAL HAEMORRHAGE [None]
